FAERS Safety Report 9314459 (Version 1)
Quarter: 2013Q2

REPORT INFORMATION
  Report Type: Spontaneous
  Country: US (occurrence: US)
  Receive Date: 20130529
  Receipt Date: 20130529
  Transmission Date: 20140414
  Serious: No
  Sender: FDA-Public Use
  Company Number: US-PFIZER INC-2013161110

PATIENT
  Age: 56 Year
  Sex: Male
  Weight: 86.17 kg

DRUGS (3)
  1. ADVIL [Suspect]
     Indication: TENDONITIS
     Dosage: 1 PILL, EVERY 6 HRS
     Dates: start: 201305, end: 20130524
  2. ADVIL [Suspect]
     Indication: JOINT INJURY
  3. DOXYCYCLINE [Concomitant]
     Indication: ARTHROPOD BITE
     Dosage: UNK

REACTIONS (1)
  - Abdominal pain upper [Recovered/Resolved]
